FAERS Safety Report 7126069-1 (Version None)
Quarter: 2010Q4

REPORT INFORMATION
  Report Type: 
  Country: None (occurrence: None)
  Receive Date: 20101129
  Receipt Date: 20101123
  Transmission Date: 20110411
  Serious: Yes (Hospitalization)
  Sender: FDA-Public Use
  Company Number: US-MERCK-1010USA02703

PATIENT
  Age: 60 Year
  Sex: Female

DRUGS (3)
  1. FOSAMAX [Suspect]
     Route: 048
  2. ASPIRIN [Concomitant]
     Route: 065
  3. FERROUS SULFATE [Suspect]
     Route: 065

REACTIONS (10)
  - BLOOD PRESSURE SYSTOLIC INCREASED [None]
  - DEEP VEIN THROMBOSIS [None]
  - DYSPHAGIA [None]
  - HAEMATOCRIT DECREASED [None]
  - HAEMOGLOBIN DECREASED [None]
  - INTERNATIONAL NORMALISED RATIO DECREASED [None]
  - NAUSEA [None]
  - ODYNOPHAGIA [None]
  - OESOPHAGEAL HAEMORRHAGE [None]
  - VOMITING [None]
